FAERS Safety Report 5926343-8 (Version None)
Quarter: 2008Q4

REPORT INFORMATION
  Report Type: 
  Country: None (occurrence: None)
  Receive Date: 20081022
  Receipt Date: 20050316
  Transmission Date: 20090506
  Serious: Yes (Disabling)
  Sender: FDA-Public Use
  Company Number: US-BAYER-US-2005-003953

PATIENT
  Age: 35 Year
  Sex: Female
  Weight: 56 kg

DRUGS (23)
  1. CAMPATH [Suspect]
     Indication: CHRONIC ALLOGRAFT NEPHROPATHY
     Dates: start: 20041228, end: 20041228
  2. CAMPATH [Suspect]
     Dates: start: 20041103, end: 20041103
  3. CAMPATH [Suspect]
     Dates: start: 20040831, end: 20040831
  4. CAMPATH [Suspect]
     Dates: start: 20040528, end: 20040529
  5. CAMPATH [Suspect]
     Dates: start: 20040627, end: 20040627
  6. THYMOGLOBULIN [Suspect]
     Indication: PANCREAS TRANSPLANT
     Dosage: TOTAL DAILY DOSE: 75 MG
     Route: 042
     Dates: start: 20050204, end: 20050209
  7. CELLCEPT [Concomitant]
  8. PARENTERAL MULTIVITAMINS [Concomitant]
  9. NEURONTIN [Concomitant]
  10. ZYRTEC [Concomitant]
  11. RHINOCORT [Concomitant]
  12. TRAZODONE HCL [Concomitant]
  13. REGLAN [Concomitant]
  14. ARANESP [Concomitant]
  15. ZENAPAX [Concomitant]
  16. PREMARIN [Concomitant]
  17. XANAX [Concomitant]
  18. BACTRIM [Concomitant]
  19. MYCELEX [Concomitant]
  20. PERCOCET [Concomitant]
  21. PAXIL [Concomitant]
  22. PROTONIX [Concomitant]
  23. SENNA [Concomitant]

REACTIONS (4)
  - CHILLS [None]
  - NAUSEA [None]
  - PAIN [None]
  - PYREXIA [None]
